FAERS Safety Report 16100595 (Version 2)
Quarter: 2019Q2

REPORT INFORMATION
  Report Type: Report from Study
  Country: EG (occurrence: EG)
  Receive Date: 20190321
  Receipt Date: 20190404
  Transmission Date: 20190711
  Serious: Yes (Other)
  Sender: FDA-Public Use
  Company Number: EG-SA-2019SA072622

PATIENT
  Age: 8 Year
  Sex: Male

DRUGS (2)
  1. HUMALOG [Concomitant]
     Active Substance: INSULIN LISPRO
     Dosage: 4, 5, 4 IU, TID
  2. INSULIN GLARGINE [Suspect]
     Active Substance: INSULIN GLARGINE
     Indication: TYPE 1 DIABETES MELLITUS
     Dosage: 5 IU, QD
     Route: 058
     Dates: start: 201705

REACTIONS (5)
  - Cerebrovascular accident [Not Recovered/Not Resolved]
  - Abdominal distension [Recovered/Resolved]
  - Hemiplegia [Not Recovered/Not Resolved]
  - Hyperglycaemia [Recovered/Resolved]
  - Tonsillitis [Recovered/Resolved]

NARRATIVE: CASE EVENT DATE: 20180820
